FAERS Safety Report 22778315 (Version 2)
Quarter: 2023Q4

REPORT INFORMATION
  Report Type: Report from Study
  Country: US (occurrence: US)
  Receive Date: 20230802
  Receipt Date: 20231003
  Transmission Date: 20240110
  Serious: Yes (Other)
  Sender: FDA-Public Use
  Company Number: US-002147023-NVSC2023US166315

PATIENT
  Sex: Female

DRUGS (1)
  1. KESIMPTA [Suspect]
     Active Substance: OFATUMUMAB
     Indication: Multiple sclerosis
     Dosage: UNK
     Route: 065

REACTIONS (9)
  - Multiple sclerosis relapse [Unknown]
  - Cognitive disorder [Unknown]
  - Memory impairment [Unknown]
  - Urinary incontinence [Unknown]
  - Cough [Unknown]
  - Sneezing [Unknown]
  - Feeling abnormal [Unknown]
  - Depression [Unknown]
  - Anxiety [Unknown]
